FAERS Safety Report 12643481 (Version 1)
Quarter: 2016Q3

REPORT INFORMATION
  Report Type: Spontaneous
  Country: US (occurrence: US)
  Receive Date: 20160811
  Receipt Date: 20160811
  Transmission Date: 20161109
  Serious: No
  Sender: FDA-Public Use
  Company Number: US-TEVA-682490ACC

PATIENT
  Age: 24 Year
  Sex: Female
  Weight: 70.37 kg

DRUGS (3)
  1. LO LOESTRIN FE [Concomitant]
     Active Substance: ETHINYL ESTRADIOL\NORETHINDRONE ACETATE
     Indication: CONTRACEPTION
     Dates: start: 201508
  2. PLAN B ONE-STEP [Suspect]
     Active Substance: LEVONORGESTREL
     Indication: POST COITAL CONTRACEPTION
     Dates: start: 20160605, end: 20160605
  3. LO LOESTRIN FE [Concomitant]
     Active Substance: ETHINYL ESTRADIOL\NORETHINDRONE ACETATE
     Indication: ACNE

REACTIONS (7)
  - Emotional disorder [Recovered/Resolved]
  - Uterine spasm [Recovered/Resolved]
  - Menstruation irregular [Recovered/Resolved]
  - Crying [Recovered/Resolved]
  - Breast tenderness [Recovered/Resolved]
  - Abdominal pain lower [Recovered/Resolved]
  - Nipple pain [Recovered/Resolved]

NARRATIVE: CASE EVENT DATE: 20160713
